FAERS Safety Report 4948833-7 (Version None)
Quarter: 2006Q1

REPORT INFORMATION
  Report Type: 
  Country: None (occurrence: None)
  Receive Date: 20060321
  Receipt Date: 20060309
  Transmission Date: 20060701
  Serious: Yes (Death, Hospitalization)
  Sender: FDA-Public Use
  Company Number: JP-JNJFOC-20060303044

PATIENT
  Age: 14 Year
  Sex: Female

DRUGS (7)
  1. RISPERDAL [Suspect]
     Route: 048
  2. LORAZEPAM [Concomitant]
     Route: 048
  3. PREDNISOLONE [Concomitant]
  4. TEPRENONE [Concomitant]
     Route: 048
  5. DILAZEP HYDROCHLORIDE [Concomitant]
  6. ALFACALCIDOL [Concomitant]
     Route: 048
  7. DOMPERIDONE [Concomitant]

REACTIONS (3)
  - BLOOD CREATINE PHOSPHOKINASE INCREASED [None]
  - MYOGLOBIN BLOOD INCREASED [None]
  - VIRAL INFECTION [None]
